FAERS Safety Report 9583578 (Version 2)
Quarter: 2013Q4

REPORT INFORMATION
  Report Type: Spontaneous
  Country: US (occurrence: US)
  Receive Date: 20131002
  Receipt Date: 20131002
  Transmission Date: 20140711
  Serious: No
  Sender: FDA-Public Use
  Company Number: US-AMGEN-USASP2013042816

PATIENT
  Age: 65 Year
  Sex: Female
  Weight: 111.57 kg

DRUGS (13)
  1. ENBREL [Suspect]
     Indication: RHEUMATOID ARTHRITIS
     Dosage: 50 MG, WEEKLY
     Route: 058
     Dates: start: 201204
  2. ACTONEL [Concomitant]
     Dosage: UNK
  3. FLEXERIL                           /00428402/ [Concomitant]
     Dosage: UNK
  4. FOLIC ACID [Concomitant]
     Dosage: UNK
  5. LEFLUNOMIDE [Concomitant]
     Dosage: UNK
  6. METHOTREXATE [Concomitant]
     Dosage: UNK
  7. NEXIUM                             /01479302/ [Concomitant]
     Dosage: UNK
  8. MACROBID                           /00024401/ [Concomitant]
     Dosage: UNK
  9. PLAQUENIL                          /00072602/ [Concomitant]
     Dosage: UNK
  10. REQUIP [Concomitant]
     Dosage: UNK
  11. VENTOLIN                           /00139501/ [Concomitant]
     Dosage: UNK
  12. VITAMIN D3 [Concomitant]
     Dosage: UNK
  13. ZOCOR [Concomitant]
     Dosage: UNK

REACTIONS (1)
  - Urticaria [Recovered/Resolved]
